FAERS Safety Report 9251580 (Version 1)
Quarter: 2013Q1

REPORT INFORMATION
  Report Type: Spontaneous
  Country: US (occurrence: None)
  Receive Date: 20130305
  Receipt Date: 20130305
  Transmission Date: 20140127
  Serious: Yes (Other)
  Sender: FDA-Public Use
  Company Number: 163-21880-12092672

PATIENT
  Age: 84 Year
  Sex: Male

DRUGS (5)
  1. REVLIMID [Suspect]
     Dosage: 21 IN 28 D
     Route: 048
     Dates: start: 20120713
  2. LOVENOX [Concomitant]
  3. DEXAMETHASONE [Concomitant]
  4. ACYCLOVIR [Concomitant]
  5. DIFLUCAN [Concomitant]

REACTIONS (1)
  - Platelet count decreased [None]
